FAERS Safety Report 16651273 (Version 1)
Quarter: 2019Q3

REPORT INFORMATION
  Report Type: Spontaneous
  Country: US (occurrence: US)
  Receive Date: 20190730
  Receipt Date: 20190730
  Transmission Date: 20191004
  Serious: Yes (Other)
  Sender: FDA-Public Use
  Company Number: None

PATIENT
  Age: 61 Year
  Sex: Male
  Weight: 104.5 kg

DRUGS (2)
  1. MOOG CURLIN MEDICAL PCA PUMP [Suspect]
     Active Substance: DEVICE
  2. DILAUDID [Suspect]
     Active Substance: HYDROMORPHONE HYDROCHLORIDE

REACTIONS (4)
  - Incorrect drug administration rate [None]
  - Oxygen saturation decreased [None]
  - Lethargy [None]
  - Device malfunction [None]

NARRATIVE: CASE EVENT DATE: 20190617
